FAERS Safety Report 6586538-X (Version None)
Quarter: 2010Q1

REPORT INFORMATION
  Report Type: 
  Country: None (occurrence: None)
  Receive Date: 20100217
  Receipt Date: 20090316
  Transmission Date: 20100710
  Serious: No
  Sender: FDA-Public Use
  Company Number: US-ALLERGAN-0903588US

PATIENT
  Sex: Female

DRUGS (3)
  1. BOTOX COSMETIC [Suspect]
     Indication: SKIN WRINKLING
     Dosage: UNK, SINGLE
     Route: 030
     Dates: start: 20090311, end: 20090311
  2. JUVEDERM [Suspect]
     Indication: SKIN WRINKLING
  3. ADVAIR DISKUS 100/50 [Concomitant]

REACTIONS (5)
  - INFLAMMATION [None]
  - NAUSEA [None]
  - PALPITATIONS [None]
  - SWELLING [None]
  - TREMOR [None]
